FAERS Safety Report 6012729-2 (Version None)
Quarter: 2008Q4

REPORT INFORMATION
  Report Type: 
  Country: None (occurrence: None)
  Receive Date: 20081217
  Receipt Date: 20081203
  Transmission Date: 20090506
  Serious: Yes (Other)
  Sender: FDA-Public Use
  Company Number: 2008S1021625

PATIENT
  Age: 68 Year
  Sex: Male

DRUGS (8)
  1. AMLODIPINE DURA     (AMLODIPINE MESILATE) [Suspect]
     Indication: DRUG USE FOR UNKNOWN INDICATION
     Dosage: ORAL
     Route: 048
     Dates: start: 20081128
  2. ZINKOROTAT [Concomitant]
  3. BROMELAIN [Concomitant]
  4. NEBILET [Concomitant]
  5. ASPIRIN [Concomitant]
  6. MAGNETRANS [Concomitant]
  7. INSUMAN RAPID [Concomitant]
  8. GLUCOPHAGE [Concomitant]

REACTIONS (9)
  - ABDOMINAL PAIN [None]
  - DRY MOUTH [None]
  - FATIGUE [None]
  - HEADACHE [None]
  - HYPOAESTHESIA [None]
  - MICTURITION URGENCY [None]
  - PERIPHERAL COLDNESS [None]
  - URINARY HESITATION [None]
  - VISUAL IMPAIRMENT [None]
